FAERS Safety Report 23579179 (Version 1)
Quarter: 2024Q1

REPORT INFORMATION
  Report Type: Spontaneous
  Country: PL (occurrence: None)
  Receive Date: 20240229
  Receipt Date: 20240229
  Transmission Date: 20240410
  Serious: Yes (Other)
  Sender: FDA-Public Use
  Company Number: 2024A047684

PATIENT
  Sex: Female

DRUGS (2)
  1. DAPAGLIFLOZIN [Suspect]
     Active Substance: DAPAGLIFLOZIN
     Route: 048
  2. UROFURAGIN [Concomitant]

REACTIONS (9)
  - Nephritis [Unknown]
  - Carbohydrate antigen 19-9 increased [Unknown]
  - Red blood cell count increased [Unknown]
  - Inflammation [Unknown]
  - White blood cell count increased [Unknown]
  - Glucose urine present [Unknown]
  - Abnormal faeces [Unknown]
  - Urinary tract infection [Unknown]
  - Product dose omission issue [Unknown]
